FAERS Safety Report 7503856-9 (Version None)
Quarter: 2011Q2

REPORT INFORMATION
  Report Type: 
  Country: None (occurrence: None)
  Receive Date: 20110524
  Receipt Date: 20110524
  Transmission Date: 20111010
  Serious: Yes (Death)
  Sender: FDA-Public Use
  Company Number: None

PATIENT
  Age: 68 Year
  Sex: Male
  Weight: 96.1626 kg

DRUGS (15)
  1. LEXAPRO [Suspect]
     Indication: DEPRESSION
     Dosage: 10 MG 2 PER DAY ORAL
     Route: 048
     Dates: start: 20110308, end: 20110411
  2. LEVAQUIN [Suspect]
     Indication: PROSTATE INFECTION
     Dosage: 500MG 1 PER DAY ORAL
     Route: 048
     Dates: start: 20110223, end: 20110311
  3. CIPROFLOXACIN [Suspect]
  4. ACTOS [Concomitant]
  5. LEVAQUIN [Concomitant]
  6. BENAZEPRIL HYDROCHLORIDE [Concomitant]
  7. DOCUSATE SODIUM [Concomitant]
  8. DOXYCYCLINE [Concomitant]
  9. CRESTOR [Concomitant]
  10. METFORMIN HCL [Concomitant]
  11. ZOLPIDEM [Concomitant]
  12. AMLODIPINE [Concomitant]
  13. BACTRIN [Concomitant]
  14. FLOMAX [Concomitant]
  15. IBUPROFEN [Concomitant]

REACTIONS (6)
  - GUN SHOT WOUND [None]
  - COMPLETED SUICIDE [None]
  - DEPRESSION [None]
  - DRUG INEFFECTIVE [None]
  - PRODUCT SUBSTITUTION ISSUE [None]
  - INSOMNIA [None]
